FAERS Safety Report 7051648-X (Version None)
Quarter: 2010Q4

REPORT INFORMATION
  Report Type: 
  Country: None (occurrence: None)
  Receive Date: 20101019
  Receipt Date: 20101007
  Transmission Date: 20110411
  Serious: Yes (Hospitalization)
  Sender: FDA-Public Use
  Company Number: FR-SANOFI-AVENTIS-2010SA060995

PATIENT
  Age: 73 Year
  Sex: Female

DRUGS (6)
  1. LOVENOX [Suspect]
     Indication: THROMBOSIS PROPHYLAXIS
     Route: 058
     Dates: start: 20100901, end: 20100908
  2. OFLOCET [Suspect]
     Route: 065
     Dates: start: 20100903, end: 20100908
  3. ROPIVACAINE [Concomitant]
     Dates: start: 20100901, end: 20100901
  4. BUPIVACAINE HYDROCHLORIDE [Concomitant]
     Dates: start: 20100901, end: 20100901
  5. SUFENTA PRESERVATIVE FREE [Concomitant]
     Dates: start: 20100901, end: 20100901
  6. LASIX [Concomitant]
     Dates: start: 20100901

REACTIONS (1)
  - TOXIC EPIDERMAL NECROLYSIS [None]
